FAERS Safety Report 7280925-2 (Version None)
Quarter: 2011Q1

REPORT INFORMATION
  Report Type: 
  Country: None (occurrence: None)
  Receive Date: 20110203
  Receipt Date: 20110203
  Transmission Date: 20110831
  Serious: Yes (Disabling)
  Sender: FDA-Public Use
  Company Number: None

PATIENT
  Age: 91 Year
  Sex: Female
  Weight: 61.2356 kg

DRUGS (1)
  1. NORTRIPTYLINE HCL [Suspect]
     Indication: PAIN
     Dosage: 1 EVERY 12 HOURS PO
     Route: 048
     Dates: start: 20110119, end: 20110119

REACTIONS (2)
  - ABNORMAL BEHAVIOUR [None]
  - HALLUCINATION, VISUAL [None]
